FAERS Safety Report 24553609 (Version 1)
Quarter: 2024Q4

REPORT INFORMATION
  Report Type: Spontaneous
  Country: US (occurrence: US)
  Receive Date: 20241028
  Receipt Date: 20241028
  Transmission Date: 20250115
  Serious: No
  Sender: ROCHE
  Company Number: US-ROCHE-3532251

PATIENT
  Age: 11 Year
  Sex: Male
  Weight: 36.29 kg

DRUGS (1)
  1. NUTROPIN AQ [Suspect]
     Active Substance: SOMATROPIN
     Indication: Hypopituitarism
     Route: 058
     Dates: start: 202301

REACTIONS (6)
  - Product complaint [Unknown]
  - Product complaint [Unknown]
  - Product dose omission issue [Unknown]
  - Product complaint [Unknown]
  - Liquid product physical issue [Unknown]
  - No adverse event [Unknown]

NARRATIVE: CASE EVENT DATE: 20240315
